FAERS Safety Report 8551335-2 (Version None)
Quarter: 2012Q3

REPORT INFORMATION
  Report Type: 
  Country: None (occurrence: None)
  Receive Date: 20120730
  Receipt Date: 20120214
  Transmission Date: 20120928
  Serious: No
  Sender: FDA-Public Use
  Company Number: US-ALLERGAN-1202212US

PATIENT
  Age: 46 Year
  Sex: Female

DRUGS (2)
  1. SEASONALE [Concomitant]
     Indication: CONTRACEPTION
     Route: 048
  2. LATISSE [Suspect]
     Indication: GROWTH OF EYELASHES
     Dosage: 2 GTT, UNK
     Route: 061
     Dates: start: 20110101

REACTIONS (5)
  - EYELASH DISCOLOURATION [None]
  - INCORRECT DOSE ADMINISTERED [None]
  - MADAROSIS [None]
  - TRICHORRHEXIS [None]
  - WRONG TECHNIQUE IN DRUG USAGE PROCESS [None]
